FAERS Safety Report 18495422 (Version 1)
Quarter: 2020Q4

REPORT INFORMATION
  Report Type: Spontaneous
  Country: DE (occurrence: DE)
  Receive Date: 20201112
  Receipt Date: 20201112
  Transmission Date: 20210114
  Serious: Yes (Death, Life-Threatening, Hospitalization, Other)
  Sender: FDA-Public Use
  Company Number: DE-AUROBINDO-AUR-APL-2020-055376

PATIENT
  Age: 79 Year
  Sex: Female
  Weight: 71 kg

DRUGS (46)
  1. VALSARTAN FILM-COATED TABLET [Suspect]
     Active Substance: VALSARTAN
     Dosage: 320 MILLIGRAM, ONCE A DAY (160 MG, BID (ONCE IN THE MORNING, ONCE IN THE EVENING))
     Route: 065
     Dates: start: 201005
  2. VALSARTAN HEXAL [Suspect]
     Active Substance: VALSARTAN
     Indication: PRODUCT USED FOR UNKNOWN INDICATION
     Dosage: UNK
     Route: 065
     Dates: start: 2014
  3. DIGIMERCK [Concomitant]
     Active Substance: DIGITOXIN
     Indication: PRODUCT USED FOR UNKNOWN INDICATION
     Dosage: UNK (0.07)
     Route: 065
     Dates: start: 201901
  4. EUTHYROX [Concomitant]
     Active Substance: LEVOTHYROXINE SODIUM
     Indication: PRODUCT USED FOR UNKNOWN INDICATION
     Dosage: 125 UNK, ONCE A DAY (MORNING)
     Route: 065
  5. PANTOPRAZOLE [Concomitant]
     Active Substance: PANTOPRAZOLE
     Indication: PRODUCT USED FOR UNKNOWN INDICATION
     Dosage: 40 MILLIGRAM
     Route: 065
     Dates: start: 201901
  6. PARACETAMOL 1 A PHARMA [Concomitant]
     Active Substance: ACETAMINOPHEN
     Indication: PRODUCT USED FOR UNKNOWN INDICATION
     Dosage: 1000 MILLIGRAM
     Route: 065
     Dates: start: 201903
  7. MACROGOL ABZ BALANCE [Concomitant]
     Active Substance: POLYETHYLENE GLYCOL 3350\POTASSIUM CHLORIDE\SODIUM BICARBONATE\SODIUM CHLORIDE
     Indication: PRODUCT USED FOR UNKNOWN INDICATION
     Dosage: UNK
     Route: 065
     Dates: start: 201902
  8. BISOPROLOL+HYDROCHLOROTHIAZIDE [Suspect]
     Active Substance: BISOPROLOL FUMARATE\HYDROCHLOROTHIAZIDE
     Indication: PRODUCT USED FOR UNKNOWN INDICATION
     Dosage: UNK, ONCE A DAY ? AN UNIT OF 10/25, (IN THE MORNING)
     Route: 065
     Dates: start: 200903
  9. DIOVAN [Suspect]
     Active Substance: VALSARTAN
     Indication: PRODUCT USED FOR UNKNOWN INDICATION
     Dosage: UNK
     Route: 065
     Dates: start: 2011, end: 2013
  10. L-THYROX HEXAL [Suspect]
     Active Substance: LEVOTHYROXINE SODIUM
     Indication: PRODUCT USED FOR UNKNOWN INDICATION
     Dosage: 1.25 TABLETS OF 100 ?G, QD (8 AM)
     Route: 048
     Dates: start: 20180524, end: 20180612
  11. VALSARTAN HEXAL COMP [Suspect]
     Active Substance: HYDROCHLOROTHIAZIDE\VALSARTAN
     Indication: PRODUCT USED FOR UNKNOWN INDICATION
     Dosage: UNK
     Route: 065
     Dates: start: 2013
  12. MOMETASONE [Concomitant]
     Active Substance: MOMETASONE
     Indication: PRODUCT USED FOR UNKNOWN INDICATION
     Dosage: 1 MILLIGRAM PER GRAM
     Route: 065
  13. VALSARTAN DURA [Concomitant]
     Active Substance: VALSARTAN
     Indication: PRODUCT USED FOR UNKNOWN INDICATION
     Dosage: 160 MILLIGRAM
     Route: 065
     Dates: start: 201702
  14. AMLODIPINE [Suspect]
     Active Substance: AMLODIPINE BESYLATE
     Dosage: 10 MILLIGRAM, ONCE A DAY(5 MG, BID)
     Route: 048
     Dates: start: 20180523, end: 20180612
  15. DIOVAN [Suspect]
     Active Substance: VALSARTAN
     Dosage: UNK, ONCE A DAY (1X 160, BID (IN THE MORNING AND EVENING))
     Route: 065
     Dates: start: 201310
  16. PREDNISOLONE. [Suspect]
     Active Substance: PREDNISOLONE
     Indication: PRODUCT USED FOR UNKNOWN INDICATION
     Dosage: UNK
     Route: 065
  17. VALSARTAN HEXAL [Suspect]
     Active Substance: VALSARTAN
     Indication: PRODUCT USED FOR UNKNOWN INDICATION
     Dosage: UNK, ONCE A DAY (? A TABLET OF 320 MG, BID (8.00 AM TO 6 PM))
     Route: 048
     Dates: start: 20180523, end: 20180612
  18. L THYROXIN HENNING [Concomitant]
     Active Substance: LEVOTHYROXINE SODIUM
     Indication: PRODUCT USED FOR UNKNOWN INDICATION
     Dosage: 125 UNK, ONCE A DAY
     Route: 065
     Dates: start: 199003, end: 2018
  19. DIOVAN [Suspect]
     Active Substance: VALSARTAN
     Dosage: UNK, ONCE A DAY (? X 160 MG, (EVENING))
     Route: 065
     Dates: start: 201302
  20. DIOVAN [Suspect]
     Active Substance: VALSARTAN
     Dosage: UNK , ONCE A DAY (2X 80, (MORNING))
     Route: 065
     Dates: start: 20130215, end: 201310
  21. VALSARTAN DURA [Suspect]
     Active Substance: VALSARTAN
     Indication: PRODUCT USED FOR UNKNOWN INDICATION
     Dosage: UNK
     Route: 065
     Dates: start: 2017, end: 2018
  22. VALSARTAN 1A PHARMA [Suspect]
     Active Substance: VALSARTAN
     Indication: PRODUCT USED FOR UNKNOWN INDICATION
     Dosage: 320 MILLIGRAM, ONCE A DAY (160 MG, BID)
     Route: 065
     Dates: start: 200502
  23. FERRO-SANOL DUODENAL [Concomitant]
     Active Substance: FERROUS GLYCINE SULFATE
     Indication: PRODUCT USED FOR UNKNOWN INDICATION
     Dosage: 1 DOSAGE FORM, ONCE A DAY
     Route: 065
  24. VALSARTAN FILM-COATED TABLET [Suspect]
     Active Substance: VALSARTAN
     Dosage: 160 MILLIGRAM, ONCE A DAY (80 MG, BID)
     Route: 065
     Dates: start: 2012
  25. BISOPROLOL-RATIOPHARM [Interacting]
     Active Substance: BISOPROLOL
     Indication: PRODUCT USED FOR UNKNOWN INDICATION
     Dosage: 5 MILLIGRAM, ONCE A DAY (ONGOING AT DISCHARGE FROM REHABILITATION)
     Route: 048
     Dates: start: 20180524
  26. DIOVAN [Suspect]
     Active Substance: VALSARTAN
     Indication: PRODUCT USED FOR UNKNOWN INDICATION
     Dosage: UNK, ONCE A DAY 80, BID (IN THE MORNING AND IN THE EVENING)
     Route: 065
     Dates: start: 201001, end: 201302
  27. VALSARTAN 1A PHARMA [Suspect]
     Active Substance: VALSARTAN
     Dosage: 160 MILLIGRAM
     Route: 065
     Dates: start: 201312, end: 2017
  28. HALOPERIDOL NEURAXPHARM [Concomitant]
     Active Substance: HALOPERIDOL
     Indication: PRODUCT USED FOR UNKNOWN INDICATION
     Dosage: 30 MILLILITER
     Route: 065
     Dates: start: 201902
  29. VALSARTAN FILM-COATED TABLET [Suspect]
     Active Substance: VALSARTAN
     Indication: PRODUCT USED FOR UNKNOWN INDICATION
     Dosage: 320 MILLIGRAM, ONCE A DAY (160 MG, BID)
     Route: 065
     Dates: start: 2005
  30. BISOPROLOL PLUS 1 A PHARMA [Suspect]
     Active Substance: BISOPROLOL FUMARATE\HYDROCHLOROTHIAZIDE
     Indication: PRODUCT USED FOR UNKNOWN INDICATION
     Dosage: UNK
     Route: 065
     Dates: start: 2014, end: 2018
  31. DIOVAN [Suspect]
     Active Substance: VALSARTAN
     Dosage: UNK
     Route: 065
     Dates: start: 2013, end: 2013
  32. TAVOR [Concomitant]
     Indication: PRODUCT USED FOR UNKNOWN INDICATION
     Dosage: 1.0, UNK
     Route: 065
     Dates: start: 201902
  33. FUROSEMIDE. [Concomitant]
     Active Substance: FUROSEMIDE
     Indication: PRODUCT USED FOR UNKNOWN INDICATION
     Dosage: 80 MILLIGRAM, ONCE A DAY (40 MG, BID)
     Route: 065
     Dates: start: 201903
  34. IBUPROFEN. [Concomitant]
     Active Substance: IBUPROFEN
     Indication: PRODUCT USED FOR UNKNOWN INDICATION
     Dosage: UNK, ONCE A DAY (400, (2X DAILY (MORNING AND EVENING) )
     Route: 065
  35. AMLODIPINE [Suspect]
     Active Substance: AMLODIPINE BESYLATE
     Indication: PRODUCT USED FOR UNKNOWN INDICATION
     Dosage: 5 MILLIGRAM
     Route: 065
     Dates: start: 2016, end: 2017
  36. DIOVAN [Suspect]
     Active Substance: VALSARTAN
     Dosage: UNK , ONCE A DAY (? X 160 MG, (EVENING))
     Route: 065
     Dates: start: 20130215, end: 201310
  37. L THYROXIN HENNING [Concomitant]
     Active Substance: LEVOTHYROXINE SODIUM
     Dosage: 125 UNK
     Route: 065
     Dates: start: 2016
  38. MIDAZOLAM. [Concomitant]
     Active Substance: MIDAZOLAM
     Indication: PRODUCT USED FOR UNKNOWN INDICATION
     Dosage: 5MG/1ML, UNK
     Route: 065
     Dates: start: 201903
  39. HCT HEXAL [Concomitant]
     Active Substance: HYDROCHLOROTHIAZIDE
     Indication: PRODUCT USED FOR UNKNOWN INDICATION
     Dosage: ? TABLET OF 25 MG, QD (8 A.M.)
     Route: 048
     Dates: start: 20180524, end: 20180524
  40. AMLODIPIN 1 A PHARMA [Suspect]
     Active Substance: AMLODIPINE BESYLATE
     Indication: PRODUCT USED FOR UNKNOWN INDICATION
     Dosage: 10 MILLIGRAM, ONCE A DAY (5 MG, BID (ONCE IN THE MORNING AND ONCE IN THE EVENING))
     Route: 065
  41. DIOVAN [Suspect]
     Active Substance: VALSARTAN
     Dosage: 160 MILLIGRAM, ONCE A DAY  (MORNING))
     Route: 065
     Dates: start: 201302
  42. L-THYROX HEXAL [Suspect]
     Active Substance: LEVOTHYROXINE SODIUM
     Indication: PRODUCT USED FOR UNKNOWN INDICATION
     Dosage: UNK
     Route: 065
     Dates: start: 2014, end: 2016
  43. FENTANYL CT [Concomitant]
     Indication: PRODUCT USED FOR UNKNOWN INDICATION
     Dosage: 12 MICROGRAM/HOUR
     Route: 065
     Dates: start: 201903
  44. HYDROMORPHONE [Concomitant]
     Active Substance: HYDROMORPHONE
     Indication: PRODUCT USED FOR UNKNOWN INDICATION
     Dosage: 2 MILLIGRAM
     Route: 065
     Dates: start: 201902
  45. PANTOPRAZOL AL [Concomitant]
     Active Substance: PANTOPRAZOLE SODIUM
     Indication: PRODUCT USED FOR UNKNOWN INDICATION
     Dosage: UNK , ONCE A DAY (40,(IN THE MORNING))
     Route: 065
  46. BISOPROLOL COMP [Concomitant]
     Active Substance: BISOPROLOL FUMARATE\HYDROCHLOROTHIAZIDE
     Indication: PRODUCT USED FOR UNKNOWN INDICATION
     Dosage: ?X 10/25, QD (MORNING)
     Route: 065
     Dates: end: 201302

REACTIONS (87)
  - Myocardial ischaemia [Unknown]
  - Basal cell carcinoma [Recovered/Resolved]
  - Erysipelas [Recovering/Resolving]
  - Cardiac failure [Unknown]
  - Productive cough [Unknown]
  - Visual impairment [Unknown]
  - Rash pustular [Unknown]
  - Oedema peripheral [Recovering/Resolving]
  - Seborrhoeic keratosis [Unknown]
  - Urinary tract infection [Recovered/Resolved]
  - Nephrogenic anaemia [Unknown]
  - Diarrhoea [Unknown]
  - Dermatosis [Unknown]
  - Tendon rupture [Unknown]
  - Cognitive disorder [Recovering/Resolving]
  - Gait disturbance [Unknown]
  - Memory impairment [Recovering/Resolving]
  - Asthenia [Unknown]
  - Hypothyroidism [Unknown]
  - Weight decreased [Unknown]
  - Left ventricular hypertrophy [Unknown]
  - Nocturia [Unknown]
  - Haemorrhoids [Unknown]
  - Fatigue [Unknown]
  - Blood glucose abnormal [Unknown]
  - Abdominal pain [Unknown]
  - Colitis [Unknown]
  - Death [Fatal]
  - Renal cell carcinoma [Not Recovered/Not Resolved]
  - Confusional state [Unknown]
  - Erythema induratum [Unknown]
  - Hypokalaemia [Unknown]
  - Renal cyst [Unknown]
  - Abscess [Unknown]
  - Ventricular extrasystoles [Unknown]
  - Hypersensitivity [Unknown]
  - Iron deficiency [Unknown]
  - Anal prolapse [Unknown]
  - Tachycardia [Unknown]
  - Atrial fibrillation [Unknown]
  - Dizziness [Unknown]
  - Ventricular tachycardia [Unknown]
  - Metastases to central nervous system [Unknown]
  - Drug ineffective [Unknown]
  - Inflammation [Unknown]
  - Anal incontinence [Not Recovered/Not Resolved]
  - Insomnia [Unknown]
  - Erythema [Recovering/Resolving]
  - Urinary incontinence [Not Recovered/Not Resolved]
  - Vomiting [Unknown]
  - Hypertension [Unknown]
  - Arthralgia [Recovering/Resolving]
  - Cerumen impaction [Unknown]
  - Coordination abnormal [Recovering/Resolving]
  - Arrhythmia [Unknown]
  - Bradycardia [Unknown]
  - Loss of consciousness [Unknown]
  - Chronic kidney disease [Unknown]
  - Aphthous ulcer [Unknown]
  - Dysuria [Recovered/Resolved]
  - Functional gastrointestinal disorder [Recovered/Resolved]
  - Weight increased [Recovering/Resolving]
  - Ischaemia [Unknown]
  - General physical health deterioration [Recovering/Resolving]
  - Melanocytic naevus [Unknown]
  - Anaemia [Unknown]
  - Drug intolerance [Unknown]
  - Dyspnoea [Unknown]
  - Osteoarthritis [Unknown]
  - Aphasia [Recovering/Resolving]
  - Renal neoplasm [Recovered/Resolved]
  - Cataract [Unknown]
  - Diabetes mellitus [Unknown]
  - Fibroma [Unknown]
  - Pleural effusion [Recovered/Resolved]
  - Rash [Unknown]
  - Gastroenteritis [Unknown]
  - Tinnitus [Unknown]
  - Varicose vein [Unknown]
  - Abdominal distension [Unknown]
  - Oedema mucosal [Unknown]
  - Brain oedema [Unknown]
  - Urinary retention [Unknown]
  - Adenoma benign [Recovered/Resolved]
  - Dyschezia [Unknown]
  - Joint swelling [Unknown]
  - Pruritus [Unknown]

NARRATIVE: CASE EVENT DATE: 2007
